FAERS Safety Report 5313496-8 (Version None)
Quarter: 2007Q2

REPORT INFORMATION
  Report Type: 
  Country: None (occurrence: None)
  Receive Date: 20070424
  Receipt Date: 20070410
  Transmission Date: 20071010
  Serious: Yes (Other)
  Sender: FDA-Public Use
  Company Number: 2007JP001626

PATIENT
  Sex: Female

DRUGS (2)
  1. VESICARE [Suspect]
     Dosage: 2.5 MG, UID/QD, ORAL
     Route: 048
     Dates: start: 20070408
  2. ACETYLSALICYLIC ACID SRT [Suspect]
     Dosage: 100 MG, /D, ORAL
     Route: 048
     Dates: start: 20070408

REACTIONS (2)
  - ANOREXIA [None]
  - DEMENTIA [None]
